FAERS Safety Report 10753655 (Version 1)
Quarter: 2015Q1

REPORT INFORMATION
  Report Type: Spontaneous
  Country: JP (occurrence: JP)
  Receive Date: 20150201
  Receipt Date: 20150201
  Transmission Date: 20150721
  Serious: Yes (Other)
  Sender: FDA-Public Use
  Company Number: PHJP2015JP001172

PATIENT
  Age: 84 Year
  Sex: Male

DRUGS (12)
  1. EXELON PATCH [Suspect]
     Active Substance: RIVASTIGMINE
     Indication: AMNESIA
     Dosage: UNK
     Route: 062
     Dates: start: 20121105, end: 201405
  2. EXELON PATCH [Suspect]
     Active Substance: RIVASTIGMINE
     Dosage: 6.9MG/24HOUR (PATCH 7.5CM2/ 13 MG RIVASTIGMINE BASE) DAILY
     Route: 062
  3. EXELON PATCH [Suspect]
     Active Substance: RIVASTIGMINE
     Dosage: MAXIMUM DOSE
     Route: 062
  4. PLAVIX [Concomitant]
     Active Substance: CLOPIDOGREL BISULFATE
     Indication: PRODUCT USED FOR UNKNOWN INDICATION
     Dosage: UNK
     Route: 048
  5. EXELON PATCH [Suspect]
     Active Substance: RIVASTIGMINE
     Dosage: 9.5MG/24HOUR (PATCH 10CM2/ 18 MG RIVASTIGMINE BASE) DAILY
     Route: 062
  6. MAINTATE [Concomitant]
     Active Substance: BISOPROLOL FUMARATE
     Indication: PRODUCT USED FOR UNKNOWN INDICATION
     Route: 048
  7. DIART [Concomitant]
     Active Substance: AZOSEMIDE
     Indication: PRODUCT USED FOR UNKNOWN INDICATION
     Route: 048
  8. GASTER [Concomitant]
     Active Substance: FAMOTIDINE
     Indication: PRODUCT USED FOR UNKNOWN INDICATION
     Route: 065
  9. WARFARIN [Concomitant]
     Active Substance: WARFARIN
     Indication: PRODUCT USED FOR UNKNOWN INDICATION
     Route: 048
  10. EXELON PATCH [Suspect]
     Active Substance: RIVASTIGMINE
     Dosage: 1.9MG/24HOUR (PATCH2.5/ 4.5 MG RIVASTIGMINE BASE) DAILY
     Route: 062
     Dates: start: 20150119
  11. EXELON PATCH [Suspect]
     Active Substance: RIVASTIGMINE
     Dosage: 4.6 MG/24HOUR (PATCH 5CM2/ 9 MG RIVASTIGMINE BASE) DAILY
     Route: 062
  12. OLMETEC [Concomitant]
     Active Substance: OLMESARTAN MEDOXOMIL
     Indication: PRODUCT USED FOR UNKNOWN INDICATION
     Route: 048

REACTIONS (4)
  - Off label use [Unknown]
  - Myocardial infarction [Unknown]
  - Amnesia [Unknown]
  - Disease progression [Unknown]

NARRATIVE: CASE EVENT DATE: 201406
